FAERS Safety Report 4560946-0 (Version None)
Quarter: 2005Q1

REPORT INFORMATION
  Report Type: 
  Country: None (occurrence: None)
  Receive Date: 20050126
  Receipt Date: 20040225
  Transmission Date: 20050727
  Serious: No
  Sender: FDA-Public Use
  Company Number: US-BRISTOL-MYERS SQUIBB COMPANY-12517496

PATIENT
  Age: 54 Year
  Sex: Female
  Weight: 70 kg

DRUGS (4)
  1. GLUCOPHAGE [Suspect]
     Indication: DIABETES MELLITUS
     Route: 048
  2. ALTACE [Concomitant]
  3. ZOCOR [Concomitant]
  4. SYNTHROID [Concomitant]

REACTIONS (5)
  - ABNORMAL FAECES [None]
  - DYSGEUSIA [None]
  - GLOSSODYNIA [None]
  - OEDEMA [None]
  - TONGUE DRY [None]
